FAERS Safety Report 21234863 (Version 1)
Quarter: 2022Q3

REPORT INFORMATION
  Report Type: Spontaneous
  Country: US (occurrence: US)
  Receive Date: 20220820
  Receipt Date: 20220820
  Transmission Date: 20221027
  Serious: No
  Sender: FDA-Public Use
  Company Number: US-drreddys-SPO/USA/22/0153330

PATIENT
  Age: 65 Year
  Sex: Male

DRUGS (4)
  1. VENLAFAXINE HYDROCHLORIDE [Suspect]
     Active Substance: VENLAFAXINE HYDROCHLORIDE
     Indication: Hot flush
  2. VENLAFAXINE HYDROCHLORIDE [Suspect]
     Active Substance: VENLAFAXINE HYDROCHLORIDE
     Indication: Pelvic pain
  3. ELIGARD [Concomitant]
     Active Substance: LEUPROLIDE ACETATE
     Indication: Prostate cancer
  4. ELIGARD [Concomitant]
     Active Substance: LEUPROLIDE ACETATE
     Indication: Hormone therapy

REACTIONS (1)
  - Somnolence [Unknown]
